FAERS Safety Report 8095020-2 (Version None)
Quarter: 2012Q1

REPORT INFORMATION
  Report Type: 
  Country: None (occurrence: None)
  Receive Date: 20120131
  Receipt Date: 20120131
  Transmission Date: 20120608
  Serious: Yes (Other)
  Sender: FDA-Public Use
  Company Number: None

PATIENT
  Sex: Male
  Weight: 73.481 kg

DRUGS (1)
  1. VESICARE [Suspect]
     Indication: HYPERTONIC BLADDER
     Dosage: 1 10MG TABLET
     Dates: start: 20120121, end: 20120129

REACTIONS (5)
  - JOINT SWELLING [None]
  - HYPERSOMNIA [None]
  - URINE ABNORMALITY [None]
  - BLOOD URINE PRESENT [None]
  - POLLAKIURIA [None]
